FAERS Safety Report 7237613-8 (Version None)
Quarter: 2011Q1

REPORT INFORMATION
  Report Type: 
  Country: None (occurrence: None)
  Receive Date: 20110121
  Receipt Date: 20110112
  Transmission Date: 20110831
  Serious: Yes (Hospitalization)
  Sender: FDA-Public Use
  Company Number: PHHY2011US03113

PATIENT
  Age: 73 Year
  Sex: Female

DRUGS (3)
  1. XOPENEX [Concomitant]
     Dosage: UNK UG, UNK
  2. LEVAQUIN [Concomitant]
     Dosage: UNK
  3. TOBI [Suspect]
     Indication: CYSTIC FIBROSIS
     Dosage: 300 MG, QD
     Dates: start: 20090430

REACTIONS (3)
  - RESPIRATORY FAILURE [None]
  - CHRONIC OBSTRUCTIVE PULMONARY DISEASE [None]
  - UPPER RESPIRATORY TRACT INFECTION [None]
